FAERS Safety Report 15598286 (Version 1)
Quarter: 2018Q4

REPORT INFORMATION
  Report Type: Spontaneous
  Country: US (occurrence: US)
  Receive Date: 20181105
  Receipt Date: 20181105
  Transmission Date: 20190205
  Serious: No
  Sender: FDA-Public Use
  Company Number: None

PATIENT
  Age: 52 Year
  Sex: Female

DRUGS (3)
  1. IBRANCE [Suspect]
     Active Substance: PALBOCICLIB
     Dates: start: 201510
  2. FASLODEX [Concomitant]
     Active Substance: FULVESTRANT
  3. LETROZOLE. [Concomitant]
     Active Substance: LETROZOLE

REACTIONS (4)
  - Urticaria [None]
  - Hypoaesthesia [None]
  - Injection site reaction [None]
  - Neuropathy peripheral [None]

NARRATIVE: CASE EVENT DATE: 20181101
